FAERS Safety Report 18187265 (Version 1)
Quarter: 2020Q3

REPORT INFORMATION
  Report Type: Spontaneous
  Country: CA (occurrence: CA)
  Receive Date: 20200824
  Receipt Date: 20200824
  Transmission Date: 20201103
  Serious: Yes (Life-Threatening, Hospitalization)
  Sender: FDA-Public Use
  Company Number: CA-ACCORD-196230

PATIENT
  Age: 4 Year
  Sex: Female
  Weight: 17 kg

DRUGS (39)
  1. RANITIDINE. [Concomitant]
     Active Substance: RANITIDINE
  2. VANCOMYCIN [Concomitant]
     Active Substance: VANCOMYCIN
  3. COLECALCIFEROL [Concomitant]
     Active Substance: CHOLECALCIFEROL
  4. CYCLOPHOSPHAMIDE/CYCLOPHOSPHAMIDE MONOHYDRATE [Suspect]
     Active Substance: CYCLOPHOSPHAMIDE
     Indication: ACUTE MYELOID LEUKAEMIA
     Route: 042
  5. AMPHOTERICIN B/AMPHOTERICIN B/LIPOSOME [Concomitant]
     Active Substance: AMPHOTERICIN B
  6. DEXAMETHASONE. [Concomitant]
     Active Substance: DEXAMETHASONE
     Dosage: LIQUID INTRA? ARTICULAR
  7. FUROSEMIDE. [Concomitant]
     Active Substance: FUROSEMIDE
  8. LORAZEPAM. [Concomitant]
     Active Substance: LORAZEPAM
  9. MACROGOL [Concomitant]
     Active Substance: POLYETHYLENE GLYCOLS
  10. BUSULFAN. [Suspect]
     Active Substance: BUSULFAN
     Indication: ACUTE MYELOID LEUKAEMIA
     Route: 042
  11. CALCIUM/MAGNESIUM/VITAMIN D NOS [Concomitant]
  12. NYSTATIN. [Concomitant]
     Active Substance: NYSTATIN
  13. ACICLOVIR [Concomitant]
     Active Substance: ACYCLOVIR
  14. AMLODIPINE [Concomitant]
     Active Substance: AMLODIPINE BESYLATE
  15. MESNA. [Concomitant]
     Active Substance: MESNA
  16. MORPHINE [Concomitant]
     Active Substance: MORPHINE
  17. PENTAMIDINE [Concomitant]
     Active Substance: PENTAMIDINE
  18. PROTAMINE [Concomitant]
     Active Substance: PROTAMINE
     Dosage: SOLUTION INTRAVENOUS
  19. COLECALCIFEROL [Concomitant]
     Active Substance: CHOLECALCIFEROL
     Dosage: STRENGTH: 1000 IU
  20. FLUCONAZOLE. [Concomitant]
     Active Substance: FLUCONAZOLE
  21. METOCLOPRAMIDE. [Concomitant]
     Active Substance: METOCLOPRAMIDE
  22. NIFEDIPINE. [Concomitant]
     Active Substance: NIFEDIPINE
  23. OXYBUTYNIN. [Concomitant]
     Active Substance: OXYBUTYNIN CHLORIDE
  24. BUSULFAN. [Suspect]
     Active Substance: BUSULFAN
     Indication: ACUTE MYELOID LEUKAEMIA
     Route: 042
  25. BUSULFAN. [Suspect]
     Active Substance: BUSULFAN
     Indication: ACUTE MYELOID LEUKAEMIA
     Route: 042
  26. TOBRAMYCIN. [Concomitant]
     Active Substance: TOBRAMYCIN
  27. TRANEXAMIC ACID. [Concomitant]
     Active Substance: TRANEXAMIC ACID
  28. METHOTREXATE. [Suspect]
     Active Substance: METHOTREXATE
     Indication: ACUTE MYELOID LEUKAEMIA
     Route: 042
  29. PARACETAMOL [Concomitant]
     Active Substance: ACETAMINOPHEN
  30. CICLOSPORIN [Concomitant]
     Active Substance: CYCLOSPORINE
  31. LEVOFLOXACIN. [Concomitant]
     Active Substance: LEVOFLOXACIN
  32. ONDANSETRON [Concomitant]
     Active Substance: ONDANSETRON
  33. URSODEOXYCHOLATE SODIUM/URSODEOXYCHOLIC ACID [Concomitant]
     Active Substance: URSODIOL
  34. CEFTAZIDIME/CEFTAZIDIME PENTAHYDRATE [Concomitant]
     Active Substance: CEFTAZIDIME
     Dosage: POWDER FOR SOLUTION
  35. DIMENHYDRINATE. [Concomitant]
     Active Substance: DIMENHYDRINATE
     Dosage: LIQUID INTRAVENOUS
  36. LEVETIRACETAM. [Concomitant]
     Active Substance: LEVETIRACETAM
  37. MEROPENEM. [Concomitant]
     Active Substance: MEROPENEM
     Dosage: POWDER FOR SOLUTION INTRAVENOUS
  38. NALOXONE [Concomitant]
     Active Substance: NALOXONE
     Dosage: LIQUID INTRAMUSCULAR
  39. MYCOPHENOLIC ACID. [Concomitant]
     Active Substance: MYCOPHENOLIC ACID

REACTIONS (2)
  - Mucosal inflammation [Recovered/Resolved]
  - Aplastic anaemia [Recovered/Resolved]
